FAERS Safety Report 9830744 (Version 1)
Quarter: 2014Q1

REPORT INFORMATION
  Report Type: Spontaneous
  Country: US (occurrence: US)
  Receive Date: 20140120
  Receipt Date: 20140120
  Transmission Date: 20141002
  Serious: No
  Sender: FDA-Public Use
  Company Number: US-ENDO PHARMACEUTICALS INC.-PMVC20130002

PATIENT
  Sex: Female

DRUGS (1)
  1. PROMETHAZINE VC WITH CODEINE SYRUP [Suspect]
     Indication: COUGH
     Dosage: UNK
     Route: 048

REACTIONS (1)
  - Insomnia [Recovered/Resolved]
